FAERS Safety Report 6152695-2 (Version None)
Quarter: 2009Q2

REPORT INFORMATION
  Report Type: 
  Country: None (occurrence: None)
  Receive Date: 20090413
  Receipt Date: 20090407
  Transmission Date: 20091009
  Serious: Yes (Other)
  Sender: FDA-Public Use
  Company Number: US-BIOGENIDEC-2008BI016936

PATIENT
  Age: 50 Year
  Sex: Female
  Weight: 81 kg

DRUGS (9)
  1. TYSABRI [Suspect]
     Indication: MULTIPLE SCLEROSIS
     Route: 042
     Dates: start: 20050201, end: 20050201
  2. TYSABRI [Suspect]
     Route: 042
     Dates: start: 20061025
  3. WELLBUTRIN XL [Concomitant]
  4. ADDERALL 10 [Concomitant]
  5. DITROPAN [Concomitant]
  6. KLONOPIN [Concomitant]
  7. SYNTHROID [Concomitant]
  8. HYDROCODONE BITARTRATE [Concomitant]
  9. VITAMIN D SUPPLEMENTS [Concomitant]

REACTIONS (6)
  - ARTHRITIS [None]
  - DYSPLASTIC NAEVUS SYNDROME [None]
  - GAIT DISTURBANCE [None]
  - HYPOAESTHESIA [None]
  - LENTIGO [None]
  - MALIGNANT MELANOMA [None]
